FAERS Safety Report 4864504-X (Version None)
Quarter: 2005Q4

REPORT INFORMATION
  Report Type: 
  Country: None (occurrence: None)
  Receive Date: 20051222
  Receipt Date: 20051213
  Transmission Date: 20060501
  Serious: Yes (Hospitalization)
  Sender: FDA-Public Use
  Company Number: DE-ROCHE-428749

PATIENT
  Sex: Female

DRUGS (2)
  1. BONIVA [Suspect]
     Indication: OSTEOPOROSIS
     Route: 065
  2. INFLUSPLIT SSW [Suspect]
     Indication: PROPHYLAXIS
     Route: 065
     Dates: start: 20051003, end: 20051003

REACTIONS (5)
  - BLISTER [None]
  - DERMATITIS ALLERGIC [None]
  - ERYTHEMA [None]
  - GENERAL SYMPTOM [None]
  - URTICARIA GENERALISED [None]
